FAERS Safety Report 14501725 (Version 1)
Quarter: 2018Q1

REPORT INFORMATION
  Report Type: Spontaneous
  Country: GB (occurrence: GB)
  Receive Date: 20180207
  Receipt Date: 20180207
  Transmission Date: 20180509
  Serious: Yes (Other)
  Sender: FDA-Public Use
  Company Number: GB-ALEXION PHARMACEUTICALS INC.-A201801150

PATIENT
  Age: 15 Year
  Sex: Female

DRUGS (1)
  1. SOLIRIS [Suspect]
     Active Substance: ECULIZUMAB
     Indication: PRODUCT USED FOR UNKNOWN INDICATION
     Route: 065

REACTIONS (10)
  - Renal impairment [Not Recovered/Not Resolved]
  - Blood creatinine increased [Unknown]
  - Haemoglobin decreased [Unknown]
  - Nephrosclerosis [Unknown]
  - Hypertension [Unknown]
  - Renal vascular thrombosis [Unknown]
  - Haemolysis [Not Recovered/Not Resolved]
  - Platelet count decreased [Unknown]
  - Haptoglobin abnormal [Unknown]
  - Blood lactate dehydrogenase increased [Unknown]
